FAERS Safety Report 23038789 (Version 1)
Quarter: 2023Q4

REPORT INFORMATION
  Report Type: Spontaneous
  Country: DE (occurrence: DE)
  Receive Date: 20231006
  Receipt Date: 20231006
  Transmission Date: 20240110
  Serious: Yes (Hospitalization)
  Sender: FDA-Public Use
  Company Number: DE-AMGEN-DEUSP2023169091

PATIENT
  Sex: Male

DRUGS (14)
  1. PEGFILGRASTIM [Suspect]
     Active Substance: PEGFILGRASTIM
     Indication: B-cell lymphoma
     Dosage: 6 MILLIGRAM (2 WEEKS FOR 87 DAYS)
     Route: 058
     Dates: start: 20151105, end: 20160130
  2. VINCRISTINE [Suspect]
     Active Substance: VINCRISTINE
     Indication: B-cell lymphoma
     Dosage: 3.74 MILLIGRAM (2 WEEKS FOR 78 DAYS)
     Route: 042
     Dates: start: 20151111, end: 20160127
  3. PREDNISONE [Suspect]
     Active Substance: PREDNISONE
     Indication: B-cell lymphoma
     Dosage: 100 MILLIGRAM (1 DAY FOR 84 DAYS)
     Route: 048
     Dates: start: 20151105, end: 20160127
  4. CYCLOPHOSPHAMIDE [Suspect]
     Active Substance: CYCLOPHOSPHAMIDE
     Indication: B-cell lymphoma
     Dosage: 1402.5 MILLIGRAM (2 WEEK FOR 82 DAY)
     Route: 042
     Dates: start: 20151107, end: 20160127
  5. DOXORUBICIN [Suspect]
     Active Substance: DOXORUBICIN
     Indication: B-cell lymphoma
     Dosage: 99.5 MILLIGRAM (2 WEEKS FOR 82 DAYS)
     Route: 042
     Dates: start: 20151107, end: 20160127
  6. RITUXIMAB [Suspect]
     Active Substance: RITUXIMAB
     Indication: B-cell lymphoma
     Dosage: 701.25 MILLIGRAM (2 WEEK FOR 97 DAYS)
     Route: 042
     Dates: start: 20151105, end: 20160209
  7. METHOTREXATE SODIUM [Suspect]
     Active Substance: METHOTREXATE SODIUM
     Indication: B-cell lymphoma
     Dosage: 2.73 MILLIGRAM (5 WEEK FOR 83 DAYS)
     Route: 042
     Dates: start: 20151120, end: 20160210
  8. CHOLECALCIFEROL [Concomitant]
     Active Substance: CHOLECALCIFEROL
     Indication: Prophylaxis
     Dosage: 40000 INTERNATIONAL UNIT (1X FOR 117 DAYS)
     Route: 048
     Dates: start: 20151105, end: 20160229
  9. SULFAMETHOXAZOLE\TRIMETHOPRIM [Concomitant]
     Active Substance: SULFAMETHOXAZOLE\TRIMETHOPRIM
     Indication: Infection
     Dosage: 960 MILLIGRAM (2X FOR 117 DAYS)
     Route: 048
     Dates: start: 20151105, end: 20160229
  10. AMOXICILLIN [Concomitant]
     Active Substance: AMOXICILLIN
     Indication: Infection
     Dosage: 875 MILLIGRAM (2X FOR 51 DAYS)
     Route: 048
     Dates: start: 20151105, end: 20151225
  11. TAMSULOSIN [Concomitant]
     Active Substance: TAMSULOSIN
     Indication: Hyperplasia
     Dosage: 0.4 MILLIGRAM (1X FOR 78 DAYS)
     Route: 048
     Dates: start: 20151214, end: 20160229
  12. ENOXAPARIN SODIUM [Concomitant]
     Active Substance: ENOXAPARIN SODIUM
     Indication: Prophylaxis
     Dosage: 4000 INTERNATIONAL UNIT (1X FOR 34 DAYS)
     Route: 048
     Dates: start: 20151031, end: 20151203
  13. PANTOPRAZOLE SODIUM [Concomitant]
     Active Substance: PANTOPRAZOLE SODIUM
     Indication: Prophylaxis against gastrointestinal ulcer
     Dosage: 40 MILLIGRAM (1X FOR 117 DAYS)
     Route: 048
     Dates: start: 20151105, end: 20160229
  14. ACYCLOVIR [Concomitant]
     Active Substance: ACYCLOVIR
     Indication: Prophylaxis
     Dosage: 400 MILLIGRAM (1X FOR 6 DAYS)
     Route: 048
     Dates: start: 20151124, end: 20151129

REACTIONS (1)
  - Pyrexia [Recovered/Resolved]

NARRATIVE: CASE EVENT DATE: 20151106
